FAERS Safety Report 15074985 (Version 1)
Quarter: 2018Q2

REPORT INFORMATION
  Report Type: Report from Study
  Country: US (occurrence: US)
  Receive Date: 20180627
  Receipt Date: 20180627
  Transmission Date: 20180711
  Serious: Yes (Other)
  Sender: FDA-Public Use
  Company Number: US-SAOL THERAPEUTICS-2017SAO03394

PATIENT
  Age: 58 Year
  Sex: Female

DRUGS (16)
  1. COMPOUNDED FENTANYL [Suspect]
     Active Substance: FENTANYL
     Dosage: 300.10 ?G, \DAY
     Route: 037
     Dates: start: 20160727
  2. BACLOFEN. [Suspect]
     Active Substance: BACLOFEN
     Dosage: 243.89 ?G, \DAY
     Route: 037
     Dates: start: 20160727, end: 20160727
  3. BUPIVACAINE. [Suspect]
     Active Substance: BUPIVACAINE
     Dosage: 5.941 MG, \DAY
     Route: 037
     Dates: start: 20160601, end: 20160727
  4. BACLOFEN. [Suspect]
     Active Substance: BACLOFEN
     Dosage: 215.22 ?G, \DAY
     Route: 037
     Dates: start: 20160601, end: 20160627
  5. COMPOUNDED FENTANYL [Suspect]
     Active Substance: FENTANYL
     Dosage: 299.92 ?G, \DAY
     Route: 037
     Dates: start: 20160727, end: 20160727
  6. BUPIVACAINE. [Suspect]
     Active Substance: BUPIVACAINE
     Dosage: 6.732 MG, \DAY
     Route: 037
     Dates: start: 20160727, end: 20160727
  7. BUPIVACAINE. [Suspect]
     Active Substance: BUPIVACAINE
     Dosage: 6.579 MG, \DAY
     Route: 037
     Dates: end: 20160601
  8. BACLOFEN. [Suspect]
     Active Substance: BACLOFEN
     Dosage: 244.04 ?G, \DAY
     Route: 037
     Dates: start: 20160727
  9. COMPOUNDED FENTANYL [Suspect]
     Active Substance: FENTANYL
     Dosage: 293.11 ?G, \DAY
     Route: 037
     Dates: end: 20160601
  10. COMPOUNDED FENTANYL [Suspect]
     Active Substance: FENTANYL
     Dosage: 264.67 ?G, \DAY
     Route: 037
     Dates: start: 20160601, end: 20160727
  11. BUPIVACAINE. [Suspect]
     Active Substance: BUPIVACAINE
     Dosage: 6.736 MG, \DAY
     Route: 037
     Dates: start: 20160727
  12. CLONIDINE. [Suspect]
     Active Substance: CLONIDINE
     Dosage: 274.98 ?G, \DAY
     Route: 037
     Dates: end: 20160601
  13. BACLOFEN. [Suspect]
     Active Substance: BACLOFEN
     Dosage: 238.34 ?G, \DAY
     Route: 037
     Dates: end: 20160601
  14. CLONIDINE. [Suspect]
     Active Substance: CLONIDINE
     Dosage: 248.31 ?G, \DAY
     Route: 037
     Dates: start: 20160601, end: 20160727
  15. CLONIDINE. [Suspect]
     Active Substance: CLONIDINE
     Dosage: 281.55 ?G, \DAY
     Route: 037
     Dates: start: 20160727
  16. CLONIDINE. [Suspect]
     Active Substance: CLONIDINE
     Dosage: 281.38 ?G, \DAY
     Route: 037
     Dates: start: 20160727, end: 20160727

REACTIONS (2)
  - Implant site extravasation [Recovered/Resolved]
  - Implant site erosion [Recovered/Resolved]

NARRATIVE: CASE EVENT DATE: 20170726
